FAERS Safety Report 6390504-7 (Version None)
Quarter: 2009Q4

REPORT INFORMATION
  Report Type: 
  Country: None (occurrence: None)
  Receive Date: 20091003
  Receipt Date: 20090921
  Transmission Date: 20100525
  Serious: Yes (Hospitalization)
  Sender: FDA-Public Use
  Company Number: 1000009147

PATIENT
  Age: 78 Year
  Sex: Male

DRUGS (9)
  1. CITALOPRAM HYDROBROMIDE [Suspect]
     Dosage: 20 MG (20 MG,1 IN 1 D),ORAL
     Route: 048
     Dates: start: 20090101, end: 20090702
  2. HYDREA [Concomitant]
  3. VASOBRAL [Concomitant]
  4. COVERSYL [Concomitant]
  5. ZOCOR [Concomitant]
  6. LANZOR [Concomitant]
  7. MAG 2 [Concomitant]
  8. FLIXOTIDE DISKUS [Concomitant]
  9. SEREVENT [Concomitant]

REACTIONS (6)
  - ABNORMAL BEHAVIOUR [None]
  - COGNITIVE DISORDER [None]
  - DISORIENTATION [None]
  - HAEMOGLOBIN DECREASED [None]
  - HYPONATRAEMIA [None]
  - MEMORY IMPAIRMENT [None]
